FAERS Safety Report 12219032 (Version 2)
Quarter: 2016Q2

REPORT INFORMATION
  Report Type: Report from Study
  Country: BE (occurrence: BE)
  Receive Date: 20160329
  Receipt Date: 20160411
  Transmission Date: 20160815
  Serious: Yes (Hospitalization)
  Sender: FDA-Public Use
  Company Number: BE-ABBVIE-16P-013-1590766-00

PATIENT
  Sex: Female

DRUGS (5)
  1. DUODOPA [Suspect]
     Active Substance: CARBIDOPA\LEVODOPA
     Indication: PARKINSON^S DISEASE
     Dosage: AM=4.5ML; CD=2.8ML/H FOR 16HRS; ED=1.5ML
     Route: 050
     Dates: start: 20150112, end: 20150217
  2. PROLOPA [Concomitant]
     Active Substance: BENSERAZIDE\LEVODOPA
     Dosage: FORM STRENGTH: 100MG/25MG;?UNIT DOSE=0.5 TABLET
  3. DUODOPA [Suspect]
     Active Substance: CARBIDOPA\LEVODOPA
     Dosage: AM=4.5ML; CD=2.1ML/H FOR 16HRS; ED=1ML
     Route: 050
     Dates: start: 20151011
  4. DUODOPA [Suspect]
     Active Substance: CARBIDOPA\LEVODOPA
     Dosage: DOSES CONTINUOUSLY MONIITORED AND ADAPTED.
     Route: 050
     Dates: start: 20150217, end: 20151011
  5. PROLOPA [Concomitant]
     Active Substance: BENSERAZIDE\LEVODOPA
     Indication: PARKINSON^S DISEASE
     Dosage: WHEN NEEDED
     Route: 048

REACTIONS (1)
  - Femur fracture [Unknown]
